FAERS Safety Report 5121814-9 (Version None)
Quarter: 2006Q4

REPORT INFORMATION
  Report Type: 
  Country: None (occurrence: None)
  Receive Date: 20061006
  Receipt Date: 20060927
  Transmission Date: 20070319
  Serious: Yes (Hospitalization)
  Sender: FDA-Public Use
  Company Number: JP-ROCHE-465435

PATIENT
  Age: 45 Year

DRUGS (1)
  1. TRETINOIN [Suspect]
     Route: 065

REACTIONS (3)
  - C-REACTIVE PROTEIN INCREASED [None]
  - PYREXIA [None]
  - SYNOVITIS [None]
